FAERS Safety Report 12255151 (Version 7)
Quarter: 2016Q4

REPORT INFORMATION
  Report Type: Report from Study
  Country: CA (occurrence: CA)
  Receive Date: 20160411
  Receipt Date: 20161123
  Transmission Date: 20170207
  Serious: Yes (Hospitalization, Other)
  Sender: FDA-Public Use
  Company Number: CA-TAKEDA-2016TUS005952

PATIENT
  Age: 51 Year
  Sex: Female

DRUGS (1)
  1. VEDOLIZUMAB [Suspect]
     Active Substance: VEDOLIZUMAB
     Indication: CROHN^S DISEASE
     Dosage: 300 MG, UNK
     Route: 042
     Dates: start: 20160317

REACTIONS (6)
  - Lower respiratory tract infection [Unknown]
  - Upper limb fracture [Unknown]
  - Upper respiratory tract infection [Unknown]
  - Infusion site extravasation [Unknown]
  - Pneumonia [Unknown]
  - Fall [Unknown]

NARRATIVE: CASE EVENT DATE: 20160331
